FAERS Safety Report 8592704-4 (Version None)
Quarter: 2012Q3

REPORT INFORMATION
  Report Type: 
  Country: None (occurrence: None)
  Receive Date: 20120814
  Receipt Date: 20120713
  Transmission Date: 20120928
  Serious: No
  Sender: FDA-Public Use
  Company Number: US-COVIDIEN/TYCO HEALTHCARE/MALLINCKRODT-T201202820

PATIENT
  Age: 33 Year
  Sex: Male

DRUGS (7)
  1. VITAMIN B12                        /00056201/ [Concomitant]
  2. OXYCODONE [Concomitant]
     Indication: BREAKTHROUGH PAIN
     Dosage: 15 MG
  3. DIAZEPAM [Concomitant]
     Indication: SLEEP DISORDER
     Dosage: UNK
  4. FENTANYL [Suspect]
     Indication: PAIN
     Dosage: TWO 75 MCG/HOUR PATCHES, QOD
     Route: 062
     Dates: start: 20110101
  5. ANTIHYPERTENSIVES [Concomitant]
     Indication: BLOOD PRESSURE
     Dosage: UNK
  6. VITAMIN D2 [Concomitant]
  7. TESTIM [Concomitant]
     Indication: BLOOD TESTOSTERONE DECREASED
     Dosage: UNK

REACTIONS (2)
  - DRUG ADMINISTRATION ERROR [None]
  - DRUG EFFECT INCREASED [None]
